FAERS Safety Report 6321661-6 (Version None)
Quarter: 2009Q3

REPORT INFORMATION
  Report Type: 
  Country: None (occurrence: None)
  Receive Date: 20090824
  Receipt Date: 20090819
  Transmission Date: 20100115
  Serious: Yes (Death, Other)
  Sender: FDA-Public Use
  Company Number: US-CELGENEUS-163-20785-09081388

PATIENT
  Age: 8 Month
  Sex: Female

DRUGS (8)
  1. THALOMID [Suspect]
     Route: 048
  2. OCTREOTIDE [Concomitant]
     Route: 065
  3. AMICAR [Concomitant]
     Route: 065
  4. BLOOD TRANSFUSION [Concomitant]
     Indication: DRUG USE FOR UNKNOWN INDICATION
     Dosage: 14-17
     Route: 051
  5. PLATELETS [Concomitant]
     Indication: DRUG USE FOR UNKNOWN INDICATION
     Dosage: 14-17
     Route: 051
  6. CORTICOSTEROIDS [Concomitant]
     Indication: DRUG USE FOR UNKNOWN INDICATION
     Route: 065
  7. INTERFERON ALPHA [Concomitant]
     Indication: DRUG USE FOR UNKNOWN INDICATION
     Route: 065
  8. VINCRISTINE [Concomitant]
     Indication: DRUG USE FOR UNKNOWN INDICATION
     Route: 065

REACTIONS (3)
  - APNOEA [None]
  - RESPIRATORY DISTRESS [None]
  - RESPIRATORY FAILURE [None]
